FAERS Safety Report 4771392-9 (Version None)
Quarter: 2005Q3

REPORT INFORMATION
  Report Type: 
  Country: None (occurrence: None)
  Receive Date: 20050914
  Receipt Date: 20050901
  Transmission Date: 20060218
  Serious: Yes (Hospitalization)
  Sender: FDA-Public Use
  Company Number: HQWYE265006SEP05

PATIENT
  Age: 27 Year
  Sex: Male

DRUGS (2)
  1. EFFEXOR XR [Suspect]
     Dates: start: 20030901, end: 20030901
  2. SEROQUEL [Suspect]

REACTIONS (13)
  - ASEPTIC NECROSIS BONE [None]
  - DEPRESSION [None]
  - DIALYSIS [None]
  - HYPOAESTHESIA [None]
  - INTENTIONAL MISUSE [None]
  - MUSCLE DISORDER [None]
  - MUSCLE INJURY [None]
  - NERVE INJURY [None]
  - NEUROLEPTIC MALIGNANT SYNDROME [None]
  - OVERDOSE [None]
  - RENAL FAILURE [None]
  - RESPIRATORY FAILURE [None]
  - RHABDOMYOLYSIS [None]
